FAERS Safety Report 5766855-3 (Version None)
Quarter: 2008Q2

REPORT INFORMATION
  Report Type: 
  Country: None (occurrence: None)
  Receive Date: 20080612
  Receipt Date: 20080530
  Transmission Date: 20081010
  Serious: Yes (Death, Other)
  Sender: FDA-Public Use
  Company Number: JP-WYE-H04126208

PATIENT
  Sex: Male

DRUGS (4)
  1. METHOTREXATE [Interacting]
     Indication: METASTASES TO MENINGES
     Route: 050
  2. DICLOFENAC SODIUM [Interacting]
  3. SULFAMETHOXAZOLE AND TRIMETHOPRIM [Suspect]
  4. LOXOPROFEN [Interacting]

REACTIONS (5)
  - DISEASE PROGRESSION [None]
  - DRUG CLEARANCE DECREASED [None]
  - DRUG INTERACTION [None]
  - HYPERSENSITIVITY [None]
  - PANCYTOPENIA [None]
